FAERS Safety Report 19011405 (Version 1)
Quarter: 2021Q1

REPORT INFORMATION
  Report Type: Spontaneous
  Country: US (occurrence: US)
  Receive Date: 20210315
  Receipt Date: 20210315
  Transmission Date: 20210420
  Serious: Yes (Life-Threatening, Hospitalization)
  Sender: FDA-Public Use
  Company Number: None

PATIENT
  Age: 33 Year
  Sex: Male
  Weight: 210 kg

DRUGS (4)
  1. HYDROXAZINE [Concomitant]
  2. AMPICILLIN/SULBACTAM [Suspect]
     Active Substance: AMPICILLIN SODIUM\SULBACTAM SODIUM
     Indication: SEPSIS
     Dosage: ?          QUANTITY:1 IV BAG;?
     Route: 042
     Dates: start: 20210113, end: 20210302
  3. BETA BLOCKERS [Concomitant]
     Active Substance: UNSPECIFIED INGREDIENT
  4. KEPPRA [Concomitant]
     Active Substance: LEVETIRACETAM

REACTIONS (2)
  - Hepatomegaly [None]
  - Hepatitis acute [None]

NARRATIVE: CASE EVENT DATE: 20210306
